FAERS Safety Report 8555571-0 (Version None)
Quarter: 2012Q3

REPORT INFORMATION
  Report Type: 
  Country: None (occurrence: None)
  Receive Date: 20120731
  Receipt Date: 20120124
  Transmission Date: 20120928
  Serious: No
  Sender: FDA-Public Use
  Company Number: US-ASTRAZENECA-2010SE56532

PATIENT
  Age: 50 Year
  Sex: Female

DRUGS (11)
  1. SEROQUEL [Suspect]
     Route: 048
  2. RESTERIL [Concomitant]
  3. SEROQUEL [Suspect]
     Indication: SLEEP DISORDER
     Dosage: 100 MG TO 150 MG AT BEDTIME DEPENDING ON HER SYMPTOMS
     Route: 048
  4. SEROQUEL [Suspect]
     Route: 048
  5. SEROQUEL [Suspect]
     Route: 048
  6. KLONOPIN [Concomitant]
  7. XANAX [Concomitant]
  8. CELEXA [Concomitant]
  9. SEROQUEL [Suspect]
     Indication: BIPOLAR II DISORDER
     Dosage: 100 MG TO 150 MG AT BEDTIME DEPENDING ON HER SYMPTOMS
     Route: 048
  10. SEROQUEL [Suspect]
     Indication: DEPRESSION
     Dosage: 100 MG TO 150 MG AT BEDTIME DEPENDING ON HER SYMPTOMS
     Route: 048
  11. ZOLOFT [Concomitant]

REACTIONS (8)
  - VITAMIN D DECREASED [None]
  - ASTHENIA [None]
  - ACUTE STRESS DISORDER [None]
  - ADVERSE DRUG REACTION [None]
  - WEIGHT INCREASED [None]
  - OEDEMA [None]
  - HYPOPROTEINAEMIA [None]
  - DRUG DOSE OMISSION [None]
